FAERS Safety Report 8367115-7 (Version None)
Quarter: 2012Q2

REPORT INFORMATION
  Report Type: 
  Country: None (occurrence: None)
  Receive Date: 20120517
  Receipt Date: 20120503
  Transmission Date: 20120825
  Serious: Yes (Other)
  Sender: FDA-Public Use
  Company Number: DE-VALEANT-2012VX002170

PATIENT

DRUGS (1)
  1. FLUOROURACIL [Suspect]
     Route: 042

REACTIONS (1)
  - DIARRHOEA [None]
